FAERS Safety Report 4682682-2 (Version None)
Quarter: 2005Q2

REPORT INFORMATION
  Report Type: 
  Country: None (occurrence: None)
  Receive Date: 20050606
  Receipt Date: 20050527
  Transmission Date: 20051028
  Serious: Yes (Hospitalization)
  Sender: FDA-Public Use
  Company Number: FR-GLAXOSMITHKLINE-B0383082A

PATIENT
  Age: 50 Year
  Sex: Male
  Weight: 69 kg

DRUGS (4)
  1. EPIVIR [Suspect]
     Indication: HIV INFECTION
     Dosage: 2TAB PER DAY
     Route: 048
     Dates: start: 20020515, end: 20050504
  2. INVIRASE [Suspect]
     Indication: HIV INFECTION
     Dosage: 6UNIT PER DAY
     Route: 048
     Dates: start: 20020515, end: 20050504
  3. NORVIR [Suspect]
     Indication: HIV INFECTION
     Dosage: 2UNIT PER DAY
     Route: 048
     Dates: start: 20020515, end: 20050504
  4. ZERIT [Suspect]
     Indication: HIV INFECTION
     Dosage: 2UNIT PER DAY
     Route: 048
     Dates: start: 20020515, end: 20050504

REACTIONS (2)
  - HYPERCHOLESTEROLAEMIA [None]
  - MYOCARDIAL INFARCTION [None]
